FAERS Safety Report 9746240 (Version 1)
Quarter: 2013Q4

REPORT INFORMATION
  Report Type: Spontaneous
  Country: US (occurrence: US)
  Receive Date: 20131211
  Receipt Date: 20131211
  Transmission Date: 20140711
  Serious: Yes (Death)
  Sender: FDA-Public Use
  Company Number: US-PFIZER INC-2013350589

PATIENT
  Age: 56 Year
  Sex: Female

DRUGS (1)
  1. REVATIO [Suspect]
     Indication: PULMONARY HYPERTENSION
     Dosage: 40 MG, 3X/DAY (20MG 2 TABLETS TID)
     Dates: start: 20130228

REACTIONS (1)
  - Lung disorder [Fatal]
